FAERS Safety Report 4365899-6 (Version None)
Quarter: 2004Q2

REPORT INFORMATION
  Report Type: 
  Country: None (occurrence: None)
  Receive Date: 20040526
  Receipt Date: 20040526
  Transmission Date: 20050107
  Serious: Yes (Hospitalization)
  Sender: FDA-Public Use
  Company Number: None

PATIENT
  Age: 58 Year
  Sex: Male

DRUGS (3)
  1. GATIFLOXACIN  400MG [Suspect]
     Indication: PNEUMONIA
     Dosage: 400 MG QD PO
     Route: 048
     Dates: start: 20040227, end: 20040318
  2. GUAIFENESIN [Concomitant]
  3. APAP TAB [Concomitant]

REACTIONS (4)
  - CHILLS [None]
  - PRURITUS [None]
  - PYREXIA [None]
  - RASH ERYTHEMATOUS [None]
